FAERS Safety Report 8419112-0 (Version None)
Quarter: 2012Q2

REPORT INFORMATION
  Report Type: 
  Country: None (occurrence: None)
  Receive Date: 20120607
  Receipt Date: 20120605
  Transmission Date: 20120825
  Serious: Yes (Death)
  Sender: FDA-Public Use
  Company Number: PHHY2012JP047663

PATIENT

DRUGS (4)
  1. CALCINEURIN INHIBITOR [Concomitant]
     Dosage: UNK UKN, UNK
  2. MYCOPHENOLATE MOFETIL [Concomitant]
     Dosage: 750 MG, BID
  3. PREDNISOLONE [Concomitant]
     Dosage: UNK UKN, UNK
  4. BASILIXIMAB [Suspect]
     Dosage: UNK UKN, UNK

REACTIONS (1)
  - DEATH [None]
